FAERS Safety Report 8612885-3 (Version None)
Quarter: 2012Q3

REPORT INFORMATION
  Report Type: 
  Country: None (occurrence: None)
  Receive Date: 20120822
  Receipt Date: 20120813
  Transmission Date: 20120928
  Serious: Yes (Other)
  Sender: FDA-Public Use
  Company Number: US-ASTRAZENECA-2011SE66807

PATIENT
  Age: 53 Year
  Sex: Male

DRUGS (3)
  1. NEXIUM [Suspect]
     Dosage: TWO TIMES A DAY
     Route: 048
  2. NEXIUM [Suspect]
     Route: 048
  3. PROTONIX [Concomitant]

REACTIONS (5)
  - PRODUCTIVE COUGH [None]
  - PULMONARY FIBROSIS [None]
  - OESOPHAGEAL STENOSIS [None]
  - ASPIRATION [None]
  - EPILEPSY [None]
